FAERS Safety Report 6783509-5 (Version None)
Quarter: 2010Q2

REPORT INFORMATION
  Report Type: 
  Country: None (occurrence: None)
  Receive Date: 20100622
  Receipt Date: 20100609
  Transmission Date: 20101027
  Serious: Yes (Hospitalization)
  Sender: FDA-Public Use
  Company Number: PHHY2009JP40604

PATIENT
  Age: 55 Year
  Sex: Female

DRUGS (2)
  1. DICLOFENAC SODIUM [Suspect]
     Indication: ABDOMINAL PAIN LOWER
     Dosage: 50 MG, UNK
     Route: 054
  2. DICLOFENAC SODIUM [Suspect]
     Indication: PAIN

REACTIONS (16)
  - ABDOMINAL PAIN LOWER [None]
  - ADHESION [None]
  - APHAGIA [None]
  - DECREASED APPETITE [None]
  - GAIT DISTURBANCE [None]
  - HAEMODIALYSIS [None]
  - HYSTERECTOMY [None]
  - LYMPHADENECTOMY [None]
  - MALAISE [None]
  - MASS [None]
  - OMENTECTOMY [None]
  - PERITONITIS [None]
  - RENAL FAILURE ACUTE [None]
  - SALPINGO-OOPHORECTOMY [None]
  - SURGERY [None]
  - VOMITING [None]
